FAERS Safety Report 16387998 (Version 2)
Quarter: 2022Q1

REPORT INFORMATION
  Report Type: Spontaneous
  Country: CA (occurrence: CA)
  Receive Date: 20190604
  Receipt Date: 20220307
  Transmission Date: 20220424
  Serious: Yes (Other)
  Sender: FDA-Public Use
  Company Number: CA-AUROBINDO-AUR-APL-2019-030218

PATIENT
  Age: 59 Year
  Sex: Female

DRUGS (13)
  1. ALENDRONIC ACID [Suspect]
     Active Substance: ALENDRONIC ACID
     Indication: Bone disorder
     Dosage: 70 MILLIGRAM
     Route: 048
  2. PANTOPRAZOLE [Suspect]
     Active Substance: PANTOPRAZOLE
     Indication: Gastrointestinal disorder
     Dosage: 1 DOSAGE FORM, TWO TIMES A DAY
     Route: 048
  3. CALCIUM [Suspect]
     Active Substance: CALCIUM
     Indication: Bone disorder
     Dosage: 1 DOSAGE FORM, TWO TIMES A DAY
     Route: 048
  4. FUROSEMIDE [Suspect]
     Active Substance: FUROSEMIDE
     Indication: Diuretic therapy
     Dosage: 1 DOSAGE FORM, ONCE A DAY
     Route: 048
  5. OMALIZUMAB [Suspect]
     Active Substance: OMALIZUMAB
     Indication: Asthma
     Dosage: 300 MILLIGRAM
     Route: 058
  6. VITAMIN D3 [Suspect]
     Active Substance: CHOLECALCIFEROL
     Indication: Bone disorder
     Dosage: UNK
     Route: 048
  7. DOMPERIDONE [Concomitant]
     Active Substance: DOMPERIDONE
     Indication: Gastrointestinal disorder
     Dosage: 1 DOSAGE FORM, 3 EVERY ONE DAY
     Route: 048
  8. ALVESCO [Concomitant]
     Active Substance: CICLESONIDE
     Indication: Asthma
     Dosage: 2 DOSAGE FORM, 4 EVERY 1 DAY
  9. PREDNISONE [Concomitant]
     Active Substance: PREDNISONE
     Indication: Asthma
     Dosage: UNK
     Route: 048
  10. SINGULAIR [Concomitant]
     Active Substance: MONTELUKAST SODIUM
     Indication: Asthma
     Dosage: 1 DOSAGE FORM, ONCE A DAY
     Route: 048
  11. SPIRIVA [Concomitant]
     Active Substance: TIOTROPIUM BROMIDE MONOHYDRATE
     Indication: Asthma
     Dosage: 1 DOSAGE FORM, ONCE A DAY
  12. VENTOLIN [Concomitant]
     Active Substance: ALBUTEROL SULFATE
     Indication: Product used for unknown indication
     Dosage: 2 DOSAGE FORM, 4 EVERY 1 DAY
  13. ZENHALE [Concomitant]
     Active Substance: FORMOTEROL FUMARATE\MOMETASONE FUROATE
     Indication: Asthma
     Dosage: 2 DOSAGE FORM, TWO TIMES A DAY

REACTIONS (7)
  - Alopecia [Not Recovered/Not Resolved]
  - Asthma [Not Recovered/Not Resolved]
  - Drug ineffective [Not Recovered/Not Resolved]
  - Pneumonia [Not Recovered/Not Resolved]
  - Respiratory tract congestion [Not Recovered/Not Resolved]
  - Secretion discharge [Not Recovered/Not Resolved]
  - Sputum discoloured [Not Recovered/Not Resolved]
